FAERS Safety Report 18169219 (Version 3)
Quarter: 2021Q3

REPORT INFORMATION
  Report Type: Spontaneous
  Country: GB (occurrence: GB)
  Receive Date: 20200819
  Receipt Date: 20210913
  Transmission Date: 20211014
  Serious: Yes (Other)
  Sender: FDA-Public Use
  Company Number: GB-ROCHE-2661477

PATIENT
  Sex: Female

DRUGS (1)
  1. XOLAIR [Suspect]
     Active Substance: OMALIZUMAB
     Indication: ASTHMA
     Route: 058

REACTIONS (13)
  - Dyspnoea [Unknown]
  - Dysstasia [Unknown]
  - Chest pain [Unknown]
  - Insomnia [Unknown]
  - Erythema [Unknown]
  - Headache [Unknown]
  - Spinal fracture [Unknown]
  - Osteoporosis [Unknown]
  - Muscle spasms [Unknown]
  - Asthma [Not Recovered/Not Resolved]
  - Lower respiratory tract infection [Not Recovered/Not Resolved]
  - Fall [Unknown]
  - Nausea [Unknown]

NARRATIVE: CASE EVENT DATE: 202103
